FAERS Safety Report 13174431 (Version 2)
Quarter: 2017Q1

REPORT INFORMATION
  Report Type: Spontaneous
  Country: IT (occurrence: IT)
  Receive Date: 20170131
  Receipt Date: 20170212
  Transmission Date: 20170428
  Serious: Yes (Other)
  Sender: FDA-Public Use
  Company Number: IT-ASTRAZENECA-2017SE10554

PATIENT
  Sex: Male

DRUGS (11)
  1. SEACOR [Suspect]
     Active Substance: OMEGA-3 FATTY ACIDS
     Dosage: 1000 THREE TIMES A DAY
     Route: 065
  2. SEREUPIN [Suspect]
     Active Substance: PAROXETINE HYDROCHLORIDE
     Route: 065
  3. XANAX [Suspect]
     Active Substance: ALPRAZOLAM
     Indication: ANXIETY
     Route: 065
  4. LEXOTAN [Suspect]
     Active Substance: BROMAZEPAM
     Route: 065
  5. BRILIQUE [Suspect]
     Active Substance: TICAGRELOR
     Route: 048
  6. CARDIOASPIRIN [Suspect]
     Active Substance: ASPIRIN
     Route: 048
  7. PANTORC [Suspect]
     Active Substance: PANTOPRAZOLE SODIUM
     Route: 048
  8. RAMIPRIL. [Suspect]
     Active Substance: RAMIPRIL
     Route: 048
  9. METOPROLOL. [Suspect]
     Active Substance: METOPROLOL
     Dosage: HALF TABLET TWICE DAILY
     Route: 048
  10. NORVASC [Suspect]
     Active Substance: AMLODIPINE BESYLATE
     Dosage: ONE TABLET IN THE EVENING
     Route: 048
  11. ROSUVASTATIN. [Suspect]
     Active Substance: ROSUVASTATIN
     Dosage: 20MG ONE TABLET IN THE EVENING
     Route: 048

REACTIONS (3)
  - Hot flush [Unknown]
  - Panic attack [Unknown]
  - Coronary artery occlusion [Unknown]
